FAERS Safety Report 23467651 (Version 3)
Quarter: 2024Q3

REPORT INFORMATION
  Report Type: Spontaneous
  Country: IN (occurrence: IN)
  Receive Date: 20240201
  Receipt Date: 20240917
  Transmission Date: 20241016
  Serious: Yes (Other)
  Sender: RANBAXY
  Company Number: IN-SUN PHARMACEUTICAL INDUSTRIES LTD-2024R1-429945

PATIENT
  Age: 5 Year
  Sex: Male

DRUGS (9)
  1. METHOTREXATE [Suspect]
     Active Substance: METHOTREXATE
     Indication: Pityriasis lichenoides et varioliformis acuta
     Dosage: 0.25 MILLIGRAM/KILOGRAM, WEEKLY
     Route: 065
  2. METHOTREXATE [Suspect]
     Active Substance: METHOTREXATE
     Indication: Seizure
  3. ERYTHROMYCIN [Suspect]
     Active Substance: ERYTHROMYCIN
     Indication: Pityriasis lichenoides et varioliformis acuta
     Dosage: 40 MILLIGRAM/KILOGRAM, DAILY
     Route: 048
  4. ERYTHROMYCIN [Suspect]
     Active Substance: ERYTHROMYCIN
     Indication: Seizure
  5. PREDNISOLONE [Suspect]
     Active Substance: PREDNISOLONE
     Indication: Pityriasis lichenoides et varioliformis acuta
     Dosage: 1 MILLIGRAM/KILOGRAM, DAILY
     Route: 065
  6. PREDNISOLONE [Suspect]
     Active Substance: PREDNISOLONE
     Indication: Seizure
  7. ACYCLOVIR [Suspect]
     Active Substance: ACYCLOVIR
     Indication: Eczema herpeticum
     Dosage: UNK
     Route: 048
  8. DAPSONE [Suspect]
     Active Substance: DAPSONE
     Indication: Pityriasis lichenoides et varioliformis acuta
     Dosage: 2.5 MILLIGRAM/KILOGRAM, DAILY
     Route: 065
  9. DAPSONE [Suspect]
     Active Substance: DAPSONE
     Indication: Seizure

REACTIONS (1)
  - Treatment failure [Unknown]
